FAERS Safety Report 7883958-8 (Version None)
Quarter: 2011Q4

REPORT INFORMATION
  Report Type: 
  Country: None (occurrence: None)
  Receive Date: 20111102
  Receipt Date: 20111026
  Transmission Date: 20120403
  Serious: Yes (Hospitalization, Disabling)
  Sender: FDA-Public Use
  Company Number: CA-AMGEN-CANSP2011055747

PATIENT
  Age: 56 Year
  Sex: Male
  Weight: 113.83 kg

DRUGS (8)
  1. LOPERAMIDE HCL [Concomitant]
     Route: 048
  2. ANUSOL                             /00117301/ [Concomitant]
  3. ACETAMINOPHEN [Concomitant]
     Route: 048
  4. CELEBREX [Concomitant]
  5. RANITIDINE [Concomitant]
     Route: 048
  6. ENBREL [Suspect]
     Indication: PRODUCT USED FOR UNKNOWN INDICATION
     Dosage: UNK, 2 TIMES/WK
     Route: 058
  7. CLONAZEPAM [Concomitant]
     Route: 048
  8. METOPROLOL TARTRATE [Concomitant]
     Route: 048

REACTIONS (5)
  - HYPERTENSION [None]
  - AFFECT LABILITY [None]
  - APHASIA [None]
  - DEPRESSED LEVEL OF CONSCIOUSNESS [None]
  - AMNESIA [None]
